FAERS Safety Report 4437687-3 (Version None)
Quarter: 2004Q3

REPORT INFORMATION
  Report Type: 
  Country: None (occurrence: None)
  Receive Date: 20040831
  Receipt Date: 20040326
  Transmission Date: 20050211
  Serious: No
  Sender: FDA-Public Use
  Company Number: 16240

PATIENT
  Age: 62 Year
  Sex: Female
  Weight: 59.1 kg

DRUGS (1)
  1. ZOVIRAX [Suspect]
     Route: 061
     Dates: start: 20040325

REACTIONS (1)
  - LIP PAIN [None]
